FAERS Safety Report 9254969 (Version 2)
Quarter: 2013Q2

REPORT INFORMATION
  Report Type: Spontaneous
  Country: JP (occurrence: JP)
  Receive Date: 20130425
  Receipt Date: 20130502
  Transmission Date: 20140414
  Serious: Yes (Other)
  Sender: FDA-Public Use
  Company Number: JP-009507513-1304JPN015188

PATIENT
  Age: 21 Year
  Sex: Male

DRUGS (3)
  1. REFLEX [Suspect]
     Indication: DEPRESSION
     Dosage: UNK
     Route: 048
  2. CLOXAZOLAM [Concomitant]
     Dosage: 2 MG
  3. ZOPICLONE [Concomitant]
     Dosage: 20 MG

REACTIONS (1)
  - Suicide attempt [Unknown]
